FAERS Safety Report 19366875 (Version 2)
Quarter: 2021Q2

REPORT INFORMATION
  Report Type: Other
  Country: CZ (occurrence: CZ)
  Receive Date: 20210602
  Receipt Date: 20210611
  Transmission Date: 20210717
  Serious: Yes (Other)
  Sender: FDA-Public Use
  Company Number: CZ-ROCHE-2837814

PATIENT
  Sex: Female

DRUGS (11)
  1. ECULIZUMAB [Suspect]
     Active Substance: ECULIZUMAB
     Dosage: PLANNED DOSE
     Route: 065
     Dates: start: 20171205
  2. FRAXIPARIN [Suspect]
     Active Substance: NADROPARIN CALCIUM
     Route: 065
  3. METHYLPREDNISOLONE. [Suspect]
     Active Substance: METHYLPREDNISOLONE
     Indication: IMMUNE THROMBOCYTOPENIA
     Route: 065
  4. ECULIZUMAB [Suspect]
     Active Substance: ECULIZUMAB
     Indication: PRODUCT USED FOR UNKNOWN INDICATION
     Dosage: 900 MG / 2 WEEKS
     Route: 065
  5. SORBIFER DURULES [ASCORBIC ACID/FERROUS SULFATE] [Suspect]
     Active Substance: ASCORBIC ACID\FERROUS SULFATE
     Indication: PRODUCT USED FOR UNKNOWN INDICATION
     Dosage: 1 TBL/DAY
     Route: 065
  6. FRAXIPARIN [Suspect]
     Active Substance: NADROPARIN CALCIUM
     Indication: PRODUCT USED FOR UNKNOWN INDICATION
     Route: 065
  7. FRAXIPARIN [Suspect]
     Active Substance: NADROPARIN CALCIUM
     Dosage: REDUCED TO 0.4 MG / DAY
     Route: 065
  8. RITUXIMAB. [Suspect]
     Active Substance: RITUXIMAB
     Dosage: UNK
     Route: 041
     Dates: start: 2012
  9. RITUXIMAB. [Suspect]
     Active Substance: RITUXIMAB
     Indication: IMMUNE THROMBOCYTOPENIA
     Dosage: UNK
     Route: 041
  10. PREDNISONE. [Suspect]
     Active Substance: PREDNISONE
     Indication: IMMUNE THROMBOCYTOPENIA
     Route: 065
  11. ECULIZUMAB [Suspect]
     Active Substance: ECULIZUMAB
     Dosage: FIRST 4X 600 MG/WEEK
     Route: 065
     Dates: start: 201507

REACTIONS (5)
  - Hepatic vein thrombosis [Unknown]
  - Paroxysmal nocturnal haemoglobinuria [Unknown]
  - Maternal exposure during pregnancy [Unknown]
  - Splenic vein thrombosis [Unknown]
  - Off label use [Unknown]

NARRATIVE: CASE EVENT DATE: 201303
